FAERS Safety Report 4898366-1 (Version None)
Quarter: 2006Q1

REPORT INFORMATION
  Report Type: 
  Country: None (occurrence: None)
  Receive Date: 20060131
  Receipt Date: 20060131
  Transmission Date: 20060701
  Serious: Yes (Other)
  Sender: FDA-Public Use
  Company Number: None

PATIENT
  Age: 44 Year
  Sex: Male
  Weight: 79.3795 kg

DRUGS (7)
  1. ZYPREXA [Suspect]
     Indication: MOVEMENT DISORDER
     Dosage: 15 MG BID ORAL }2 YEARS
     Route: 048
  2. BUSPAR [Suspect]
     Indication: PROFOUND MENTAL RETARDATION
     Dosage: 20 MG TID ORAL }2 YEARS
     Route: 048
     Dates: end: 20051202
  3. REVIA [Concomitant]
  4. ATIVAN [Concomitant]
  5. DILANTIN [Concomitant]
  6. ZANTAC [Concomitant]
  7. MULTI-VITAMIN [Concomitant]

REACTIONS (5)
  - DRUG INTERACTION [None]
  - DRUG LEVEL CHANGED [None]
  - METABOLIC DISORDER [None]
  - PHARMACEUTICAL PRODUCT COMPLAINT [None]
  - SELF INJURIOUS BEHAVIOUR [None]
